FAERS Safety Report 10055901 (Version 1)
Quarter: 2014Q2

REPORT INFORMATION
  Report Type: Spontaneous
  Country: US (occurrence: US)
  Receive Date: 20140403
  Receipt Date: 20140403
  Transmission Date: 20141212
  Serious: Yes (Hospitalization)
  Sender: FDA-Public Use
  Company Number: US-JNJFOC-20140316955

PATIENT
  Sex: Male

DRUGS (4)
  1. XARELTO [Suspect]
     Indication: CEREBROVASCULAR ACCIDENT PROPHYLAXIS
     Route: 048
     Dates: start: 20140311
  2. XARELTO [Suspect]
     Indication: ATRIAL FIBRILLATION
     Route: 048
     Dates: start: 20140311
  3. DICLOFENAC [Concomitant]
     Indication: INTERVERTEBRAL DISC DEGENERATION
     Route: 065
     Dates: end: 20140320
  4. LASIX [Concomitant]
     Indication: CARDIAC FAILURE CONGESTIVE
     Route: 065
     Dates: start: 20140318

REACTIONS (5)
  - Cardiac failure congestive [Not Recovered/Not Resolved]
  - Hypotension [Unknown]
  - Atrial fibrillation [Unknown]
  - Intervertebral disc degeneration [Not Recovered/Not Resolved]
  - Cough [Unknown]
